FAERS Safety Report 20797724 (Version 1)
Quarter: 2022Q2

REPORT INFORMATION
  Report Type: Report from Study
  Country: DO (occurrence: DO)
  Receive Date: 20220506
  Receipt Date: 20220506
  Transmission Date: 20220721
  Serious: Yes (Other)
  Sender: FDA-Public Use
  Company Number: DO-ABBVIE-22K-279-4258803-00

PATIENT
  Sex: Male
  Weight: 79.450 kg

DRUGS (1)
  1. HUMIRA [Suspect]
     Active Substance: ADALIMUMAB
     Indication: Crohn^s disease
     Route: 058
     Dates: start: 20150113, end: 20220208

REACTIONS (18)
  - Stenosis [Recovering/Resolving]
  - Surgery [Unknown]
  - Malaise [Not Recovered/Not Resolved]
  - Crohn^s disease [Not Recovered/Not Resolved]
  - Infection parasitic [Recovered/Resolved]
  - Amoebiasis [Not Recovered/Not Resolved]
  - Abnormal faeces [Recovering/Resolving]
  - Dehydration [Recovering/Resolving]
  - Skin exfoliation [Recovering/Resolving]
  - Vein disorder [Not Recovered/Not Resolved]
  - Immune system disorder [Not Recovered/Not Resolved]
  - Flatulence [Recovering/Resolving]
  - Depressed mood [Recovering/Resolving]
  - Abdominal pain [Recovering/Resolving]
  - Unevaluable event [Recovering/Resolving]
  - Emotional distress [Recovering/Resolving]
  - Faecal calprotectin increased [Recovering/Resolving]
  - Gastrointestinal disorder [Recovering/Resolving]

NARRATIVE: CASE EVENT DATE: 20170101
